FAERS Safety Report 16291525 (Version 1)
Quarter: 2019Q2

REPORT INFORMATION
  Report Type: Spontaneous
  Country: AU (occurrence: AU)
  Receive Date: 20190509
  Receipt Date: 20190509
  Transmission Date: 20190711
  Serious: Yes (Other)
  Sender: FDA-Public Use
  Company Number: AU-BAUSCH-BL-2019-013070

PATIENT
  Age: 57 Year
  Sex: Male

DRUGS (1)
  1. MINOCYCLINE HYDROCHLORIDE. [Suspect]
     Active Substance: MINOCYCLINE HYDROCHLORIDE
     Indication: CHRONIC SINUSITIS
     Route: 065
     Dates: end: 1982

REACTIONS (2)
  - Skin hyperpigmentation [Recovered/Resolved]
  - Cardiac valve discolouration [Recovered/Resolved]

NARRATIVE: CASE EVENT DATE: 1978
